FAERS Safety Report 5369066-9 (Version None)
Quarter: 2007Q2

REPORT INFORMATION
  Report Type: 
  Country: None (occurrence: None)
  Receive Date: 20070625
  Receipt Date: 20070111
  Transmission Date: 20071010
  Serious: No
  Sender: FDA-Public Use
  Company Number: US-ASTRAZENECA-2007UW00587

PATIENT
  Age: 83 Year
  Sex: Male
  Weight: 82.6 kg

DRUGS (7)
  1. CRESTOR [Suspect]
     Indication: BLOOD CHOLESTEROL INCREASED
     Route: 048
  2. ASPIRIN [Concomitant]
  3. LEVOTHYROXINE SODIUM [Concomitant]
  4. PLAVIX [Concomitant]
  5. RANITIDINE [Concomitant]
  6. FEXOFENADRINE [Concomitant]
  7. TRIBUTYLIN [Concomitant]

REACTIONS (2)
  - URINARY INCONTINENCE [None]
  - URINE ODOUR ABNORMAL [None]
